FAERS Safety Report 8793758 (Version 2)
Quarter: 2012Q4

REPORT INFORMATION
  Report Type: 
  Country: GB (occurrence: GB)
  Receive Date: 20120917
  Receipt Date: 20120926
  Transmission Date: 20130627
  Serious: Yes (Hospitalization, Other)
  Sender: FDA-Public Use
  Company Number: PHFR2012GB004965

PATIENT
  Age: 57 Year
  Sex: Male

DRUGS (1)
  1. CLOZARIL [Suspect]
     Indication: SCHIZOPHRENIA
     Dosage: 250 mg, daily
     Route: 048
     Dates: start: 20020502

REACTIONS (2)
  - Asthma [Recovered/Resolved]
  - Pneumonia [Recovered/Resolved]
